FAERS Safety Report 24022822 (Version 3)
Quarter: 2024Q3

REPORT INFORMATION
  Report Type: Spontaneous
  Country: IN (occurrence: IN)
  Receive Date: 20240627
  Receipt Date: 20240710
  Transmission Date: 20241016
  Serious: No
  Sender: ROCHE
  Company Number: IN-ROCHE-3524649

PATIENT
  Age: 78 Year
  Sex: Male

DRUGS (6)
  1. VABYSMO [Suspect]
     Active Substance: FARICIMAB\FARICIMAB-SVOA
     Indication: Retinal vein occlusion
     Dosage: NEXT INFUSION START DATE: 11/MAY/2024
     Route: 050
     Dates: start: 20240302
  2. VABYSMO [Suspect]
     Active Substance: FARICIMAB\FARICIMAB-SVOA
     Indication: Cystoid macular oedema
  3. EYLEA [Concomitant]
     Active Substance: AFLIBERCEPT
     Dates: start: 20240112
  4. EYLEA [Concomitant]
     Active Substance: AFLIBERCEPT
     Dates: start: 20231129
  5. COMBIGAN [Concomitant]
     Active Substance: BRIMONIDINE TARTRATE\TIMOLOL MALEATE
     Dosage: FOR LEFT EYE
     Route: 047
     Dates: start: 20240227
  6. LATANOPROST [Concomitant]
     Active Substance: LATANOPROST
     Dosage: 1 DROP 1 TIME A DAY
     Route: 047
     Dates: start: 20240227

REACTIONS (3)
  - Off label use [Unknown]
  - No adverse event [Unknown]
  - Off label use [Unknown]

NARRATIVE: CASE EVENT DATE: 20240302
